FAERS Safety Report 12960337 (Version 1)
Quarter: 2016Q4

REPORT INFORMATION
  Report Type: Spontaneous
  Country: US (occurrence: US)
  Receive Date: 20161120
  Receipt Date: 20161120
  Transmission Date: 20170207
  Serious: Yes (Disabling)
  Sender: FDA-Public Use
  Company Number: None

PATIENT
  Age: 46 Year
  Sex: Female
  Weight: 90 kg

DRUGS (1)
  1. IBUPROFEN. [Suspect]
     Active Substance: IBUPROFEN
     Indication: PRODUCT USED FOR UNKNOWN INDICATION

REACTIONS (6)
  - Fatigue [None]
  - Reaction to drug excipients [None]
  - Headache [None]
  - Inflammation [None]
  - Myalgia [None]
  - Dyspnoea [None]

NARRATIVE: CASE EVENT DATE: 20161101
